FAERS Safety Report 6128279-9 (Version None)
Quarter: 2009Q1

REPORT INFORMATION
  Report Type: 
  Country: None (occurrence: None)
  Receive Date: 20090323
  Receipt Date: 20090313
  Transmission Date: 20090719
  Serious: Yes (Hospitalization)
  Sender: FDA-Public Use
  Company Number: FR-WYE-H08633109

PATIENT
  Sex: Female

DRUGS (17)
  1. CEFIXIME CHEWABLE [Suspect]
     Route: 048
     Dates: start: 20080621, end: 20080624
  2. VISIPAQUE [Suspect]
     Indication: COMPUTERISED TOMOGRAM
     Route: 042
     Dates: start: 20080630, end: 20080630
  3. AUGMENTIN [Suspect]
     Indication: LUNG INFECTION
     Dosage: ^REGIMEN #1^
     Route: 042
     Dates: start: 20080630, end: 20080701
  4. AUGMENTIN [Suspect]
  5. BRICANYL [Suspect]
     Indication: LUNG INFECTION
     Dosage: UNKNOWN DOSE TID
     Route: 055
     Dates: start: 20080629, end: 20080630
  6. FLUIMUCIL [Suspect]
     Indication: LUNG INFECTION
     Route: 048
     Dates: start: 20080629, end: 20080630
  7. PRIMPERAN [Suspect]
     Indication: NAUSEA
     Dosage: ^INFUSION REGIMEN #1^
     Route: 042
     Dates: start: 20080627, end: 20080704
  8. PERFALGAN [Suspect]
     Indication: PAIN
     Route: 042
     Dates: start: 20080620, end: 20080704
  9. STILNOX [Suspect]
     Indication: INSOMNIA
     Route: 048
     Dates: start: 20080623, end: 20080704
  10. TRIFLUCAN [Suspect]
     Route: 048
     Dates: start: 20080624, end: 20080704
  11. XANAX [Suspect]
     Indication: ANXIETY
     Route: 048
     Dates: end: 20080701
  12. TAREG [Concomitant]
     Dosage: UNKNOWN
     Route: 048
  13. DEROXAT [Concomitant]
     Indication: ANXIETY
     Route: 048
  14. LEXOMIL [Concomitant]
     Dosage: UNKNOWN
     Route: 048
     Dates: start: 20080621
  15. NICARDIPINE HYDROCHLORIDE [Concomitant]
     Dosage: UNKNOWN
     Route: 065
     Dates: start: 20080627
  16. CARBOPLATIN [Concomitant]
     Dosage: UNKNOWN
     Route: 065
  17. LOVENOX [Suspect]
     Indication: PROPHYLAXIS
     Route: 058
     Dates: start: 20080622, end: 20080708

REACTIONS (3)
  - EPIDERMAL NECROSIS [None]
  - RASH MACULO-PAPULAR [None]
  - TOXIC SKIN ERUPTION [None]
